FAERS Safety Report 10274273 (Version 2)
Quarter: 2015Q1

REPORT INFORMATION
  Report Type: Spontaneous
  Country: US (occurrence: US)
  Receive Date: 20140702
  Receipt Date: 20150316
  Transmission Date: 20150720
  Serious: Yes (Other)
  Sender: FDA-Public Use
  Company Number: US-PFIZER INC-2014179318

PATIENT
  Sex: Female

DRUGS (1)
  1. EFFEXOR XR [Suspect]
     Active Substance: VENLAFAXINE HYDROCHLORIDE
     Dosage: 300 MG, DAILY (150MG 2 A DAY)
     Dates: start: 1992

REACTIONS (4)
  - Fibromyalgia [Unknown]
  - Myofascial pain syndrome [Unknown]
  - Depression [Unknown]
  - Migraine [Unknown]
